FAERS Safety Report 15611804 (Version 1)
Quarter: 2018Q4

REPORT INFORMATION
  Report Type: Spontaneous
  Country: US (occurrence: US)
  Receive Date: 20181107
  Receipt Date: 20181107
  Transmission Date: 20190205
  Serious: No
  Sender: FDA-Public Use
  Company Number: None

PATIENT
  Age: 73 Year
  Sex: Male

DRUGS (1)
  1. ERIVEDGE [Suspect]
     Active Substance: VISMODEGIB
     Indication: BASAL CELL CARCINOMA
     Dosage: TAKE 1 TABLET BY MOUTH EVERY DAY AS DIRECTED
     Route: 048
     Dates: start: 201805

REACTIONS (5)
  - Ageusia [None]
  - Muscle spasms [None]
  - Weight decreased [None]
  - Dehydration [None]
  - Constipation [None]
